FAERS Safety Report 8557006-0 (Version None)
Quarter: 2012Q3

REPORT INFORMATION
  Report Type: 
  Country: None (occurrence: None)
  Receive Date: 20120801
  Receipt Date: 20120720
  Transmission Date: 20120928
  Serious: Yes (Other)
  Sender: FDA-Public Use
  Company Number: US-JNJFOC-20120711389

PATIENT
  Sex: Male
  Weight: 84.82 kg

DRUGS (9)
  1. LISINOPRIL [Concomitant]
     Indication: BLOOD PRESSURE
     Route: 048
  2. AMLODIPINE BESYLATE [Concomitant]
     Indication: BLOOD PRESSURE
     Route: 048
  3. DEPAKOTE [Concomitant]
     Indication: BIPOLAR DISORDER
     Route: 048
  4. DEPAKOTE [Concomitant]
     Indication: CONVULSION
     Route: 048
  5. TRICOR [Concomitant]
     Indication: BLOOD TRIGLYCERIDES INCREASED
     Route: 048
  6. CLONAZEPAM [Concomitant]
     Indication: CONVULSION
     Route: 048
  7. SINGULAIR [Concomitant]
     Indication: MULTIPLE ALLERGIES
     Dosage: ONE IN NIGHT
     Route: 065
  8. DURAGESIC-100 [Suspect]
     Indication: PAIN
     Route: 062
     Dates: start: 20110101
  9. AGGRENOX [Concomitant]
     Indication: CEREBROVASCULAR ACCIDENT
     Route: 048
     Dates: start: 20090101

REACTIONS (6)
  - BIPOLAR DISORDER [None]
  - NEUROPATHY PERIPHERAL [None]
  - DRUG DOSE OMISSION [None]
  - PRODUCT QUALITY ISSUE [None]
  - WRONG TECHNIQUE IN DRUG USAGE PROCESS [None]
  - INSOMNIA [None]
